FAERS Safety Report 23781649 (Version 2)
Quarter: 2024Q2

REPORT INFORMATION
  Report Type: Spontaneous
  Country: CN (occurrence: CN)
  Receive Date: 20240425
  Receipt Date: 20240425
  Transmission Date: 20240715
  Serious: Yes (Hospitalization)
  Sender: FDA-Public Use
  Company Number: CN-002147023-NVSC2024CN077963

PATIENT
  Age: 63 Year
  Sex: Male
  Weight: 56 kg

DRUGS (1)
  1. OMALIZUMAB [Suspect]
     Active Substance: OMALIZUMAB
     Indication: Urticaria
     Dosage: 300 MG, Q4W (1X28),POWDER AND SOLVENT FOR SOLUTION FOR INJECTION
     Route: 058
     Dates: start: 20240327, end: 20240327

REACTIONS (30)
  - Erythema [Recovering/Resolving]
  - Papule [Recovering/Resolving]
  - Cough [Recovered/Resolved]
  - Productive cough [Recovered/Resolved]
  - Hyperaemia [Recovering/Resolving]
  - Insomnia [Recovering/Resolving]
  - Drug eruption [Recovering/Resolving]
  - Plicated tongue [Unknown]
  - Tongue discolouration [Unknown]
  - Heart rate increased [Unknown]
  - Body surface area increased [Recovering/Resolving]
  - Lymphocyte percentage decreased [Recovering/Resolving]
  - Monocyte percentage increased [Recovering/Resolving]
  - Eosinophil percentage decreased [Recovering/Resolving]
  - Monocyte count increased [Recovering/Resolving]
  - Protein total decreased [Recovering/Resolving]
  - Blood albumin decreased [Recovering/Resolving]
  - Prealbumin decreased [Recovering/Resolving]
  - Blood urea decreased [Recovering/Resolving]
  - Cystatin C increased [Recovering/Resolving]
  - Blood iron decreased [Recovering/Resolving]
  - Sinus tachycardia [Recovering/Resolving]
  - Electrocardiogram abnormal [Recovering/Resolving]
  - Transposition of the great vessels [Recovering/Resolving]
  - Electrocardiogram ST segment [Recovering/Resolving]
  - Arteriovenous fistula [Recovering/Resolving]
  - Pigmentation disorder [Unknown]
  - Blood glucose abnormal [Unknown]
  - Rash [Unknown]
  - Anxiety [Unknown]

NARRATIVE: CASE EVENT DATE: 20240327
